FAERS Safety Report 7242595-9 (Version None)
Quarter: 2011Q1

REPORT INFORMATION
  Report Type: 
  Country: None (occurrence: None)
  Receive Date: 20110125
  Receipt Date: 20110114
  Transmission Date: 20110831
  Serious: Yes (Death, Other)
  Sender: FDA-Public Use
  Company Number: US-PFIZER INC-2011010187

PATIENT
  Sex: Male
  Weight: 129.25 kg

DRUGS (6)
  1. LYRICA [Suspect]
     Indication: FIBROMYALGIA
     Dosage: 150 MG, 2X/DAY
     Route: 048
     Dates: start: 20060101
  2. KADIAN [Concomitant]
     Indication: PAIN
     Dosage: 30 MG, 2X/DAY
  3. PREDNISONE [Concomitant]
     Indication: INFLAMMATION
     Dosage: 10 MG, UNK
  4. LYRICA [Suspect]
     Indication: CHRONIC INFLAMMATORY DEMYELINATING POLYRADICULONEUROPATHY
  5. VICODIN [Concomitant]
     Indication: PAIN
     Dosage: UNK
  6. LEXAPRO [Concomitant]
     Indication: DEPRESSION
     Dosage: 20 MG, 1X/DAY

REACTIONS (5)
  - HIP ARTHROPLASTY [None]
  - EMPTY SELLA SYNDROME [None]
  - PERNICIOUS ANAEMIA [None]
  - DEATH [None]
  - ANTINUCLEAR ANTIBODY INCREASED [None]
